FAERS Safety Report 6941942-2 (Version None)
Quarter: 2010Q3

REPORT INFORMATION
  Report Type: 
  Country: None (occurrence: None)
  Receive Date: 20100823
  Receipt Date: 20100811
  Transmission Date: 20110219
  Serious: Yes (Life-Threatening, Hospitalization, Disabling, Other)
  Sender: FDA-Public Use
  Company Number: 006657

PATIENT
  Age: 30 Year
  Sex: Male
  Weight: 60 kg

DRUGS (9)
  1. KEPPRA [Suspect]
     Indication: COMPLEX PARTIAL SEIZURES
     Dosage: 1500 MG ORAL; 4000 MG ORAL; 3000 MG ORAL; 2000 MG ORAL
     Route: 048
     Dates: start: 20100221, end: 20100427
  2. KEPPRA [Suspect]
     Indication: COMPLEX PARTIAL SEIZURES
     Dosage: 1500 MG ORAL; 4000 MG ORAL; 3000 MG ORAL; 2000 MG ORAL
     Route: 048
     Dates: start: 20100428, end: 20100518
  3. KEPPRA [Suspect]
     Indication: COMPLEX PARTIAL SEIZURES
     Dosage: 1500 MG ORAL; 4000 MG ORAL; 3000 MG ORAL; 2000 MG ORAL
     Route: 048
     Dates: start: 20100519, end: 20100701
  4. KEPPRA [Suspect]
     Indication: COMPLEX PARTIAL SEIZURES
     Dosage: 1500 MG ORAL; 4000 MG ORAL; 3000 MG ORAL; 2000 MG ORAL
     Route: 048
     Dates: start: 20100701
  5. DETROL LA [Concomitant]
  6. TRILEPTAL [Concomitant]
  7. AMLODIPINE [Concomitant]
  8. NEBIVOLOL [Concomitant]
  9. DILANTIN [Concomitant]

REACTIONS (9)
  - ANGER [None]
  - ANGINA PECTORIS [None]
  - ANOREXIA NERVOSA [None]
  - ATAXIA [None]
  - BLOOD PRESSURE INCREASED [None]
  - HOSTILITY [None]
  - INCORRECT DOSE ADMINISTERED [None]
  - INTENTIONAL DRUG MISUSE [None]
  - PRURITUS [None]
